FAERS Safety Report 8238641-6 (Version None)
Quarter: 2012Q1

REPORT INFORMATION
  Report Type: 
  Country: None (occurrence: None)
  Receive Date: 20120309
  Receipt Date: 20100125
  Transmission Date: 20120608
  Serious: No
  Sender: FDA-Public Use
  Company Number: PHEH2010US01720

PATIENT
  Age: 47 Year
  Sex: Male

DRUGS (1)
  1. EXTAVIA [Suspect]
     Indication: MULTIPLE SCLEROSIS
     Dosage: 0.3 MG, EVERY OTHER DAY, INJECTION NOS
     Dates: start: 20091029

REACTIONS (2)
  - ABDOMINAL PAIN UPPER [None]
  - RENAL PAIN [None]
